FAERS Safety Report 19999968 (Version 1)
Quarter: 2021Q4

REPORT INFORMATION
  Report Type: Other
  Country: FR (occurrence: FR)
  Receive Date: 20211027
  Receipt Date: 20211027
  Transmission Date: 20220303
  Serious: Yes (Death)
  Sender: FDA-Public Use
  Company Number: FR-DEXPHARM-20211785

PATIENT
  Age: 38 Year
  Sex: Female

DRUGS (7)
  1. PREGABALIN [Interacting]
     Active Substance: PREGABALIN
  2. LORAZEPAM [Interacting]
     Active Substance: LORAZEPAM
  3. QUETIAPINE [Interacting]
     Active Substance: QUETIAPINE
  4. VENLAFAXINE [Interacting]
     Active Substance: VENLAFAXINE HYDROCHLORIDE
  5. TRAMADOL [Interacting]
     Active Substance: TRAMADOL
  6. DOSULEPIN HYDROCHLORIDE [Suspect]
     Active Substance: DOTHIEPIN HYDROCHLORIDE
  7. DULOXETINE [Suspect]
     Active Substance: DULOXETINE

REACTIONS (3)
  - Cardiac failure [Fatal]
  - Death [Fatal]
  - Drug interaction [Fatal]
